FAERS Safety Report 5624290-2 (Version None)
Quarter: 2008Q1

REPORT INFORMATION
  Report Type: 
  Country: None (occurrence: None)
  Receive Date: 20080206
  Receipt Date: 20080206
  Transmission Date: 20080703
  Serious: Yes (Other)
  Sender: FDA-Public Use
  Company Number: None

PATIENT
  Age: 66 Year
  Sex: Male
  Weight: 99.7913 kg

DRUGS (10)
  1. FLUOROURACIL [Suspect]
     Indication: PRECANCEROUS CELLS PRESENT
     Dosage: BID
     Dates: start: 20080108, end: 20080120
  2. COREG [Concomitant]
  3. LIPITOR [Concomitant]
  4. TRICOR [Concomitant]
  5. NIASPAN [Concomitant]
  6. POTASSIUM CHLORIDE [Concomitant]
  7. ASPIRIN [Concomitant]
  8. AVAPRO [Concomitant]
  9. FOLIC ACID [Concomitant]
  10. FISH OIL [Concomitant]

REACTIONS (6)
  - BURNING SENSATION [None]
  - EAR HAEMORRHAGE [None]
  - ERYTHEMA [None]
  - MEDICATION ERROR [None]
  - PAIN [None]
  - SKIN EXFOLIATION [None]
